FAERS Safety Report 4975542-0 (Version None)
Quarter: 2006Q2

REPORT INFORMATION
  Report Type: 
  Country: None (occurrence: None)
  Receive Date: 20060411
  Receipt Date: 20060329
  Transmission Date: 20061013
  Serious: Yes (Hospitalization)
  Sender: FDA-Public Use
  Company Number: 2006011147

PATIENT
  Age: 69 Year
  Sex: Female
  Weight: 163 kg

DRUGS (10)
  1. SUTENT [Suspect]
     Indication: RENAL CELL CARCINOMA STAGE UNSPECIFIED
     Dosage: 50 MG (50 MG, 1 IN 1 D), ORAL
     Route: 048
     Dates: start: 20060104
  2. LEVOTHYROXINE SODIUM [Concomitant]
  3. MORPHINE SULFATE [Concomitant]
  4. NOVALGIN (METAMIZOLE SODIUM) [Concomitant]
  5. NIMESULIDE [Concomitant]
  6. PAROXETINE HCL [Concomitant]
  7. DUPHALAC [Concomitant]
  8. DUROGESIC (FENTANYL) [Concomitant]
  9. ALL OTHER THERAPEUTIC PRODUCTS [Concomitant]
  10. ALPRAZOLAM [Concomitant]

REACTIONS (5)
  - HYPERTENSION [None]
  - HYPERURICAEMIA [None]
  - ISCHAEMIC STROKE [None]
  - PNEUMONIA [None]
  - VOMITING [None]
